FAERS Safety Report 25987383 (Version 1)
Quarter: 2025Q4

REPORT INFORMATION
  Report Type: Spontaneous
  Country: SA (occurrence: SA)
  Receive Date: 20251103
  Receipt Date: 20251103
  Transmission Date: 20260117
  Serious: No
  Sender: ALKEM
  Company Number: None

PATIENT
  Age: 27 Year
  Sex: Female

DRUGS (5)
  1. IBUPROFEN [Suspect]
     Active Substance: IBUPROFEN
     Indication: Dysmenorrhoea
     Dosage: 600 MILLIGRAM, PRN (AS NECESSARY)
     Route: 065
  2. LORATADINE [Suspect]
     Active Substance: LORATADINE
     Indication: Aquagenic wrinkling of palms
     Dosage: 10 MILLIGRAM
     Route: 065
  3. ALUMINUM CHLORIDE [Suspect]
     Active Substance: ALUMINUM CHLORIDE
     Indication: Aquagenic wrinkling of palms
     Dosage: UNK
     Route: 061
  4. DEXPANTHENOL [Suspect]
     Active Substance: DEXPANTHENOL
     Indication: Aquagenic wrinkling of palms
     Dosage: UNK
     Route: 065
  5. MEBEVERINE HYDROCHLORIDE [Concomitant]
     Active Substance: MEBEVERINE HYDROCHLORIDE
     Indication: Irritable bowel syndrome
     Dosage: 200 MILLIGRAM
     Route: 065

REACTIONS (2)
  - Aquagenic wrinkling of palms [Recovering/Resolving]
  - Therapy non-responder [Unknown]
